FAERS Safety Report 9643682 (Version 1)
Quarter: 2013Q4

REPORT INFORMATION
  Report Type: Report from Study
  Country: AR (occurrence: AR)
  Receive Date: 20131024
  Receipt Date: 20131024
  Transmission Date: 20140711
  Serious: Yes (Life-Threatening)
  Sender: FDA-Public Use
  Company Number: AR-BRISTOL-MYERS SQUIBB COMPANY-19552421

PATIENT
  Age: 73 Year
  Sex: Male

DRUGS (1)
  1. YERVOY [Suspect]
     Indication: MALIGNANT MELANOMA
     Dosage: 2NF INF: 07.OCT.2013
     Dates: start: 20130916

REACTIONS (3)
  - Inflammation [Recovering/Resolving]
  - Laryngeal oedema [Recovering/Resolving]
  - Ear pain [Recovering/Resolving]
